FAERS Safety Report 21902930 (Version 2)
Quarter: 2023Q1

REPORT INFORMATION
  Report Type: Report from Study
  Country: US (occurrence: US)
  Receive Date: 20230124
  Receipt Date: 20230211
  Transmission Date: 20230417
  Serious: Yes (Hospitalization, Other)
  Sender: FDA-Public Use
  Company Number: US-002147023-NVSC2023US014765

PATIENT
  Sex: Male

DRUGS (2)
  1. PROMACTA [Suspect]
     Active Substance: ELTROMBOPAG OLAMINE
     Indication: Immune thrombocytopenia
     Dosage: UNK
     Route: 065
     Dates: start: 202001
  2. PROMACTA [Suspect]
     Active Substance: ELTROMBOPAG OLAMINE
     Dosage: UNK
     Route: 065
     Dates: start: 202003

REACTIONS (8)
  - Myocardial infarction [Unknown]
  - Fall [Unknown]
  - Balance disorder [Unknown]
  - Asthenia [Unknown]
  - Movement disorder [Unknown]
  - Platelet count decreased [Unknown]
  - Concussion [Unknown]
  - Asthma [Unknown]
